FAERS Safety Report 12101001 (Version 1)
Quarter: 2016Q1

REPORT INFORMATION
  Report Type: Report from Study
  Country: BR (occurrence: BR)
  Receive Date: 20160222
  Receipt Date: 20160222
  Transmission Date: 20160526
  Serious: Yes (Death)
  Sender: FDA-Public Use
  Company Number: BR-UCBSA-2015040697

PATIENT
  Age: 79 Year
  Sex: Female
  Weight: 73 kg

DRUGS (10)
  1. CERTOLIZUMAB PEGOL [Suspect]
     Active Substance: CERTOLIZUMAB PEGOL
     Dosage: 200 MG, EV 4 WEEKS
     Dates: start: 201512, end: 201601
  2. METHOTREXATE [Concomitant]
     Active Substance: METHOTREXATE
     Indication: PAIN
     Dosage: 7.5 MG, 2X/DAY (BID)
     Route: 048
     Dates: start: 20151207
  3. PREDNISONE. [Concomitant]
     Active Substance: PREDNISONE
     Indication: PAIN
     Dosage: 20 MG, ONCE DAILY (QD)
     Route: 048
     Dates: start: 20151207
  4. ZOLPIDEM [Concomitant]
     Active Substance: ZOLPIDEM\ZOLPIDEM TARTRATE
     Indication: PRODUCT USED FOR UNKNOWN INDICATION
     Dosage: 10 MG
     Route: 048
     Dates: start: 201601, end: 20160211
  5. ATENOLOL. [Concomitant]
     Active Substance: ATENOLOL
     Indication: HYPERTENSION
     Dosage: 5 MG
     Route: 048
     Dates: end: 20160211
  6. CERTOLIZUMAB PEGOL [Suspect]
     Active Substance: CERTOLIZUMAB PEGOL
     Indication: RHEUMATOID ARTHRITIS
     Dosage: 400 MG, MONTHLY (QM)
     Dates: start: 201510, end: 2015
  7. FOLIC ACID. [Concomitant]
     Active Substance: FOLIC ACID
     Indication: BLOOD URIC ACID
     Dosage: 5 MG, WEEKLY (QW)
     Route: 048
     Dates: start: 20160205
  8. METHOTREXATE [Concomitant]
     Active Substance: METHOTREXATE
     Dosage: 2.5 MG
     Route: 048
  9. MICARDIS HCT [Concomitant]
     Active Substance: HYDROCHLOROTHIAZIDE\TELMISARTAN
     Indication: HYPERTENSION
     Dosage: UNK
     Dates: start: 201512, end: 20160211
  10. DIOSMIN W/HESPERIDIN [Concomitant]
     Indication: CARDIOVASCULAR DISORDER
     Dosage: UNK
     Route: 048
     Dates: end: 20160211

REACTIONS (5)
  - Cardio-respiratory arrest [Unknown]
  - Arthralgia [Not Recovered/Not Resolved]
  - Aortic rupture [Fatal]
  - Feeling abnormal [Unknown]
  - Pain in extremity [Not Recovered/Not Resolved]

NARRATIVE: CASE EVENT DATE: 2015
